FAERS Safety Report 13117299 (Version 1)
Quarter: 2017Q1

REPORT INFORMATION
  Report Type: Spontaneous
  Country: BR (occurrence: BR)
  Receive Date: 20170116
  Receipt Date: 20170116
  Transmission Date: 20170428
  Serious: Yes (Other)
  Sender: FDA-Public Use
  Company Number: BR-JNJFOC-20170110295

PATIENT
  Sex: Female
  Weight: 52 kg

DRUGS (8)
  1. RIVOTRIL [Concomitant]
     Active Substance: CLONAZEPAM
     Indication: DISTURBANCE IN ATTENTION
     Dosage: HALF OF TABLET BY MORNING AND ONE TABLET BY THE NIGHT
     Route: 048
  2. RISPERDAL [Suspect]
     Active Substance: RISPERIDONE
     Indication: PRODUCT USED FOR UNKNOWN INDICATION
     Dosage: 1.0 MG BY THE MORNING AND 1.0 MG BY THE NIGHT
     Route: 065
  3. CONCERTA [Suspect]
     Active Substance: METHYLPHENIDATE HYDROCHLORIDE
     Indication: PRODUCT USED FOR UNKNOWN INDICATION
     Dosage: BY MORNING
     Route: 048
  4. TORVAL [Concomitant]
     Active Substance: VALPROIC ACID
     Indication: EPILEPSY
     Route: 048
  5. RIVOTRIL [Concomitant]
     Active Substance: CLONAZEPAM
     Indication: AGGRESSION
     Dosage: HALF OF TABLET BY MORNING AND ONE TABLET BY THE NIGHT
     Route: 048
  6. FLUOXETINE [Concomitant]
     Active Substance: FLUOXETINE HYDROCHLORIDE
     Indication: EPILEPSY
     Route: 065
  7. RIVOTRIL [Concomitant]
     Active Substance: CLONAZEPAM
     Indication: ANXIETY
     Dosage: HALF OF TABLET BY MORNING AND ONE TABLET BY THE NIGHT
     Route: 048
  8. CHLORPROMAZINE. [Concomitant]
     Active Substance: CHLORPROMAZINE
     Indication: SLEEP DISORDER THERAPY
     Dosage: EVERY NIGHT
     Route: 048

REACTIONS (5)
  - Blood prolactin increased [Unknown]
  - Anxiety [Unknown]
  - Aggression [Unknown]
  - Intellectual disability [Unknown]
  - Disturbance in attention [Unknown]
